FAERS Safety Report 16521851 (Version 1)
Quarter: 2019Q3

REPORT INFORMATION
  Report Type: Spontaneous
  Country: ES (occurrence: ES)
  Receive Date: 20190703
  Receipt Date: 20190703
  Transmission Date: 20191004
  Serious: Yes (Other)
  Sender: FDA-Public Use
  Company Number: ES-ABBVIE-19K-144-2838988-00

PATIENT
  Age: 10 Year
  Sex: Female
  Weight: 26 kg

DRUGS (1)
  1. ADALIMUMAB [Suspect]
     Active Substance: ADALIMUMAB
     Indication: PSORIASIS
     Route: 058
     Dates: start: 20181218, end: 20190123

REACTIONS (1)
  - Alopecia universalis [Not Recovered/Not Resolved]

NARRATIVE: CASE EVENT DATE: 20190206
